FAERS Safety Report 8092151-8 (Version None)
Quarter: 2012Q1

REPORT INFORMATION
  Report Type: 
  Country: None (occurrence: None)
  Receive Date: 20120129
  Receipt Date: 20111115
  Transmission Date: 20120608
  Serious: No
  Sender: FDA-Public Use
  Company Number: US-ABBOTT-11P-163-0874284-00

PATIENT
  Sex: Male

DRUGS (3)
  1. ALBUTEROL [Concomitant]
     Indication: ASTHMA
     Dosage: NEBULIZER AS NEEDED
     Route: 055
  2. HUMIRA [Suspect]
     Indication: JUVENILE ARTHRITIS
     Route: 058
     Dates: start: 20110301
  3. ASMANEX TWISTHALER [Concomitant]
     Indication: ASTHMA

REACTIONS (2)
  - DRUG DOSE OMISSION [None]
  - GENITAL HERPES [None]
